FAERS Safety Report 17883258 (Version 3)
Quarter: 2020Q2

REPORT INFORMATION
  Report Type: Spontaneous
  Country: US (occurrence: US)
  Receive Date: 20200611
  Receipt Date: 20200628
  Transmission Date: 20200714
  Serious: No
  Sender: FDA-Public Use
  Company Number: US-009507513-2006USA004050

PATIENT
  Age: 19 Year
  Sex: Female
  Weight: 68.03 kg

DRUGS (1)
  1. NEXPLANON [Suspect]
     Active Substance: ETONOGESTREL
     Indication: CONTRACEPTION
     Dosage: 1 ROD
     Route: 059
     Dates: start: 20200420, end: 20200608

REACTIONS (3)
  - Device expulsion [Recovered/Resolved]
  - Implant site infection [Unknown]
  - Complication associated with device [Recovered/Resolved]

NARRATIVE: CASE EVENT DATE: 2020
